FAERS Safety Report 6378046-6 (Version None)
Quarter: 2009Q3

REPORT INFORMATION
  Report Type: 
  Country: None (occurrence: None)
  Receive Date: 20090925
  Receipt Date: 20090908
  Transmission Date: 20100115
  Serious: Yes (Death)
  Sender: FDA-Public Use
  Company Number: TR-CELGENEUS-161-C5013-09090576

PATIENT
  Sex: Male

DRUGS (2)
  1. CC-5013 [Suspect]
     Indication: MULTIPLE MYELOMA
     Route: 048
     Dates: start: 20090710, end: 20090730
  2. DEKORT [Concomitant]
     Indication: MULTIPLE MYELOMA
     Route: 065
     Dates: start: 20090710, end: 20090730

REACTIONS (1)
  - DISEASE PROGRESSION [None]
